FAERS Safety Report 8248794-1 (Version None)
Quarter: 2012Q1

REPORT INFORMATION
  Report Type: 
  Country: None (occurrence: None)
  Receive Date: 20120331
  Receipt Date: 20120327
  Transmission Date: 20120608
  Serious: Yes (Life-Threatening, Hospitalization, Other)
  Sender: FDA-Public Use
  Company Number: PHEH2012US001283

PATIENT
  Sex: Female
  Weight: 115.65 kg

DRUGS (16)
  1. POTASSIUM [Concomitant]
     Dosage: UNK UKN, UNK
  2. IMITREX [Concomitant]
     Dosage: UNK UKN, UNK
  3. VESICARE [Concomitant]
     Dosage: 5 MG, UNK
     Route: 048
  4. APO-BACLOFEN [Concomitant]
     Dosage: UNK UKN, UNK
  5. GABAPENTIN [Concomitant]
     Dosage: 300 MG, UNK
     Route: 048
     Dates: start: 20110301
  6. BACLOFEN [Concomitant]
     Dosage: 10 MG, UNK
     Route: 048
     Dates: start: 20110808
  7. PHYSIOTHERAPY [Concomitant]
  8. GILENYA [Suspect]
     Indication: MULTIPLE SCLEROSIS
     Dosage: 0.5 MG, QD
     Dates: start: 20110607, end: 20111206
  9. AMINOPYRIDINE [Concomitant]
     Dosage: 5 MG, UNK
     Dates: start: 20110926
  10. KLOR-CON [Concomitant]
     Dosage: 20 MEQ, UNK
     Route: 048
  11. ZANAFLEX [Concomitant]
     Dosage: 4 MG, UNK
     Route: 048
  12. AMINOPYRIDINE [Concomitant]
     Dosage: 60 MG, UNK
     Dates: start: 20110331
  13. FUROSEMIDE [Concomitant]
     Dosage: UNK UKN, UNK
  14. FOSAMAX [Concomitant]
     Dosage: 70 MG, UNK
     Route: 048
  15. TIZANIDINE HYDROCHLORIDE [Concomitant]
     Dosage: 1 DF, QD
     Route: 048
  16. BUPROPION HYDROCHLORIDE [Concomitant]
     Dosage: 150MG/12HOURS, UNK
     Route: 048

REACTIONS (9)
  - ASTHENIA [None]
  - NEUROGENIC BLADDER [None]
  - MOBILITY DECREASED [None]
  - MUSCULAR WEAKNESS [None]
  - CELLULITIS [None]
  - PSEUDOMONAS INFECTION [None]
  - OEDEMA [None]
  - URGE INCONTINENCE [None]
  - OEDEMA PERIPHERAL [None]
